FAERS Safety Report 9342428 (Version 1)
Quarter: 2013Q2

REPORT INFORMATION
  Report Type: Spontaneous
  Country: US (occurrence: US)
  Receive Date: 20130611
  Receipt Date: 20130611
  Transmission Date: 20140414
  Serious: No
  Sender: FDA-Public Use
  Company Number: US-009507513-1306USA001715

PATIENT
  Sex: Female

DRUGS (3)
  1. REBETOL [Suspect]
     Indication: HEPATITIS C
     Dosage: UNK
     Route: 048
     Dates: start: 20130318
  2. VICTRELIS [Suspect]
     Indication: HEPATITIS C
     Dosage: UNK
     Dates: start: 20130515
  3. PEGASYS [Suspect]
     Indication: HEPATITIS C
     Dosage: UNK
     Dates: start: 20130318

REACTIONS (12)
  - Balance disorder [Unknown]
  - Dysgeusia [Unknown]
  - Depression [Unknown]
  - Asthenia [Unknown]
  - Nervousness [Unknown]
  - Nervous system disorder [Unknown]
  - Decreased appetite [Unknown]
  - Back pain [Unknown]
  - Insomnia [Unknown]
  - Emotional disorder [Unknown]
  - Crying [Unknown]
  - Nausea [Unknown]
